FAERS Safety Report 5878158-7 (Version None)
Quarter: 2008Q3

REPORT INFORMATION
  Report Type: 
  Country: None (occurrence: None)
  Receive Date: 20080911
  Receipt Date: 20080902
  Transmission Date: 20090109
  Serious: Yes (Death)
  Sender: FDA-Public Use
  Company Number: FI-SANOFI-SYNTHELABO-A01200807850

PATIENT
  Sex: Female

DRUGS (4)
  1. PROGYNOVA [Concomitant]
     Route: 048
     Dates: start: 19800101, end: 20080616
  2. ELOXATIN [Suspect]
     Indication: COLORECTAL CANCER METASTATIC
     Route: 041
     Dates: start: 20080605, end: 20080605
  3. XELODA [Suspect]
     Route: 048
     Dates: start: 20080605, end: 20080612
  4. ENOXAPARIN SODIUM [Concomitant]
     Dosage: UNK
     Dates: start: 20080501

REACTIONS (8)
  - C-REACTIVE PROTEIN INCREASED [None]
  - DIARRHOEA [None]
  - MUCOSAL INFLAMMATION [None]
  - NEUTROPHIL COUNT DECREASED [None]
  - ORAL PAIN [None]
  - PARAESTHESIA [None]
  - PLATELET COUNT DECREASED [None]
  - WHITE BLOOD CELL COUNT DECREASED [None]
